FAERS Safety Report 5843822-2 (Version None)
Quarter: 2008Q3

REPORT INFORMATION
  Report Type: 
  Country: None (occurrence: None)
  Receive Date: 20080813
  Receipt Date: 20080801
  Transmission Date: 20090109
  Serious: Yes (Other)
  Sender: FDA-Public Use
  Company Number: PHHY2008CL16637

PATIENT
  Age: 67 Year
  Sex: Female

DRUGS (3)
  1. TAREG D [Suspect]
     Dosage: 320 MG VAL + 25 MG HCT
  2. ATENOLOL [Concomitant]
  3. ASPIRIN [Concomitant]

REACTIONS (1)
  - PNEUMONIA [None]
